FAERS Safety Report 8720566 (Version 2)
Quarter: 2015Q2

REPORT INFORMATION
  Report Type: Report from Study
  Country: US (occurrence: US)
  Receive Date: 20120813
  Receipt Date: 20150625
  Transmission Date: 20150821
  Serious: Yes (Other)
  Sender: FDA-Public Use
  Company Number: US-ROCHE-1098820

PATIENT
  Sex: Male

DRUGS (6)
  1. ZANTAC TABS [Concomitant]
     Route: 048
  2. HEPARIN [Concomitant]
     Active Substance: HEPARIN SODIUM
     Dosage: 2000/1ML
     Route: 042
  3. ACTIVASE [Suspect]
     Active Substance: ALTEPLASE
     Route: 042
  4. ACTIVASE [Suspect]
     Active Substance: ALTEPLASE
     Indication: ACUTE MYOCARDIAL INFARCTION
     Route: 042
  5. HYTRIN [Concomitant]
     Active Substance: TERAZOSIN HYDROCHLORIDE
  6. BETADINE [Concomitant]
     Active Substance: POVIDONE-IODINE

REACTIONS (1)
  - Chest pain [Unknown]
